FAERS Safety Report 14977363 (Version 1)
Quarter: 2018Q2

REPORT INFORMATION
  Report Type: Spontaneous
  Country: DE (occurrence: DE)
  Receive Date: 20180606
  Receipt Date: 20180606
  Transmission Date: 20180711
  Serious: Yes (Other)
  Sender: FDA-Public Use
  Company Number: DE-PAN-2018-000279

PATIENT
  Age: 71 Year
  Sex: Male

DRUGS (2)
  1. EVEROLIMUS. [Suspect]
     Active Substance: EVEROLIMUS
     Indication: RENAL TRANSPLANT
  2. TACROLIMUS. [Suspect]
     Active Substance: TACROLIMUS
     Indication: RENAL TRANSPLANT

REACTIONS (4)
  - Actinic keratosis [Unknown]
  - Cytomegalovirus infection [Unknown]
  - BK virus infection [Unknown]
  - Product use issue [Unknown]

NARRATIVE: CASE EVENT DATE: 201401
